FAERS Safety Report 19068629 (Version 1)
Quarter: 2021Q1

REPORT INFORMATION
  Report Type: Spontaneous
  Country: US (occurrence: US)
  Receive Date: 20210328
  Receipt Date: 20210328
  Transmission Date: 20210420
  Serious: Yes (Other)
  Sender: FDA-Public Use
  Company Number: None

PATIENT
  Age: 53 Year
  Sex: Female
  Weight: 117 kg

DRUGS (1)
  1. ZOLPIDEM TARTRATE. [Suspect]
     Active Substance: ZOLPIDEM TARTRATE
     Indication: INSOMNIA
     Dosage: AS NEEDED
     Route: 048
     Dates: start: 20150101, end: 20210305

REACTIONS (3)
  - Insomnia [None]
  - Restlessness [None]
  - Fatigue [None]

NARRATIVE: CASE EVENT DATE: 20210301
